FAERS Safety Report 6987402-4 (Version None)
Quarter: 2010Q3

REPORT INFORMATION
  Report Type: 
  Country: None (occurrence: None)
  Receive Date: 20100913
  Receipt Date: 20100830
  Transmission Date: 20110219
  Serious: Yes (Hospitalization)
  Sender: FDA-Public Use
  Company Number: DSJ-2010-12608

PATIENT
  Age: 78 Year
  Sex: Female
  Weight: 60 kg

DRUGS (10)
  1. OLMETEC (OLMESARTAN MEDOXOMIL) (TABLET) (OLMESARTAN MEDOXOMIL) [Suspect]
     Indication: HYPERTENSION
     Dosage: 20 MG (20 MG, 1 IN 1 D), PER ORAL
     Route: 048
     Dates: start: 20100723, end: 20100726
  2. CALBLOCK (AZELNIDIPINE) (TABLET) (AZELNIDIPINE) [Suspect]
     Indication: HYPERTENSION
     Dosage: 16 MG (16 MG, 1 IN 1 D), PER ORAL
     Route: 048
     Dates: start: 20100723, end: 20100726
  3. ALLOPURINOL [Suspect]
     Indication: HYPERURICAEMIA
     Dosage: 200 MG, PER ORAL; 100 MG (100 MG, 1 IN 1 D), PER ORAL
     Route: 048
     Dates: end: 20100722
  4. ALLOPURINOL [Suspect]
     Indication: HYPERURICAEMIA
     Dosage: 200 MG, PER ORAL; 100 MG (100 MG, 1 IN 1 D), PER ORAL
     Route: 048
     Dates: start: 20100723, end: 20100725
  5. PROTECADIN (LAFUTIDINE) (TABLET) (LAFUTIDINE) [Suspect]
     Indication: GASTRITIS
     Dosage: 10 MG (10 MG, 1 IN 1 D), PER ORAL
     Route: 048
     Dates: start: 20100723, end: 20100725
  6. DAIO-KANZO-TO (GLYCYRRHIZA GLABRA, RHEUM PALMATUM) (GRANULES) (GLYCYRR [Suspect]
     Indication: CONSTIPATION
     Dosage: 7.5 GM (2.5 GM, 3 IN 1 D), PER ORAL
     Route: 048
     Dates: start: 20100723, end: 20100726
  7. YOKU-KAN-SAN (HERBAL EXTRACT NOS) (GRANULES) (HERBAL EXTRACT NOS) [Suspect]
     Indication: PRODUCT USED FOR UNKNOWN INDICATION
     Dosage: 7.5 GM (2.5 GM, 3 IN 1 D), PER ORAL
     Route: 048
     Dates: start: 20100723, end: 20100726
  8. HALFDIGOXIN (DIGOXIN) (TABLET) (DIGOXIN) [Concomitant]
  9. SENNOSIDE (SENNOSIDE A+B) (TABLET) (SENNOSIDE A+B) [Concomitant]
  10. MYSLEE (ZOLPIDEM TARTRATE) (TABLET) (ZOLPIDEM TARTRATE) [Concomitant]

REACTIONS (1)
  - STEVENS-JOHNSON SYNDROME [None]
